FAERS Safety Report 10586328 (Version 1)
Quarter: 2014Q4

REPORT INFORMATION
  Report Type: Report from Study
  Country: US (occurrence: US)
  Receive Date: 20141117
  Receipt Date: 20141117
  Transmission Date: 20150529
  Serious: Yes (Other)
  Sender: FDA-Public Use
  Company Number: US-AMGEN-USASL2014087100

PATIENT
  Sex: Female
  Weight: 61.22 kg

DRUGS (1)
  1. PROLIA [Suspect]
     Active Substance: DENOSUMAB
     Indication: OSTEOPOROSIS POSTMENOPAUSAL
     Dosage: UNK
     Route: 065

REACTIONS (11)
  - Hysterectomy [Unknown]
  - Oophorectomy [Unknown]
  - Dyspepsia [Unknown]
  - Gastric bypass [Unknown]
  - Decreased activity [Unknown]
  - Gastrointestinal disorder [Unknown]
  - Vitamin D deficiency [Unknown]
  - Mobility decreased [Unknown]
  - Back pain [Unknown]
  - Malnutrition [Unknown]
  - Weight decreased [Unknown]
